FAERS Safety Report 7455229-5 (Version None)
Quarter: 2011Q2

REPORT INFORMATION
  Report Type: 
  Country: None (occurrence: None)
  Receive Date: 20110503
  Receipt Date: 20110420
  Transmission Date: 20111010
  Serious: Yes (Other)
  Sender: FDA-Public Use
  Company Number: PHHY2011MX34294

PATIENT
  Sex: Male

DRUGS (3)
  1. INSULIN [Concomitant]
  2. LASIX [Concomitant]
  3. AFINITOR [Suspect]
     Dates: start: 20110412

REACTIONS (7)
  - BURNING SENSATION [None]
  - OEDEMA PERIPHERAL [None]
  - ASTHENIA [None]
  - MUSCULAR WEAKNESS [None]
  - DYSPNOEA [None]
  - DELIRIUM [None]
  - THROAT TIGHTNESS [None]
